FAERS Safety Report 7371471-6 (Version None)
Quarter: 2011Q1

REPORT INFORMATION
  Report Type: 
  Country: None (occurrence: None)
  Receive Date: 20110324
  Receipt Date: 20110318
  Transmission Date: 20110831
  Serious: Yes (Death, Hospitalization)
  Sender: FDA-Public Use
  Company Number: DE-BRISTOL-MYERS SQUIBB COMPANY-14871974

PATIENT
  Age: 58 Year
  Sex: Female
  Weight: 120 kg

DRUGS (3)
  1. ALIMTA [Suspect]
     Indication: NON-SMALL CELL LUNG CANCER
     Dosage: 500MG/M2: 02JUN09-10AUG09 (70D), 02SEP09-04NOV09 (64D), D'CED ON 14DEC09
     Route: 042
     Dates: start: 20090602, end: 20091104
  2. CETUXIMAB [Suspect]
     Indication: NON-SMALL CELL LUNG CANCER
     Dosage: D1 OF CYC 400MG/M2:ON 2JUN09(1D) 250MG/M2:UNK-10AUG 250MG/M2:02SEP-04NOV09(64D) D'CED ON 14DEC09
     Route: 042
     Dates: start: 20090602, end: 20091104
  3. CISPLATIN [Suspect]
     Indication: NON-SMALL CELL LUNG CANCER
     Dosage: WITHDRAWN ON 14DEC09
     Route: 042
     Dates: start: 20090602, end: 20090810

REACTIONS (5)
  - STASIS DERMATITIS [None]
  - RENAL FAILURE [None]
  - OEDEMA PERIPHERAL [None]
  - DEATH [None]
  - ANAEMIA [None]
